FAERS Safety Report 4968652-5 (Version None)
Quarter: 2006Q2

REPORT INFORMATION
  Report Type: 
  Country: None (occurrence: None)
  Receive Date: 20060405
  Receipt Date: 20050629
  Transmission Date: 20061013
  Serious: Yes (Other)
  Sender: FDA-Public Use
  Company Number: 2005084675

PATIENT
  Age: 70 Year
  Sex: Female

DRUGS (8)
  1. VIAGRA [Suspect]
     Indication: PULMONARY EMBOLISM
     Dosage: 75 MG (25 MG, 3 IN 1 D), ORAL
     Route: 048
     Dates: start: 20040401
  2. VIAGRA [Suspect]
     Indication: PULMONARY HYPERTENSION
     Dosage: 75 MG (25 MG, 3 IN 1 D), ORAL
     Route: 048
     Dates: start: 20040401
  3. KLEXANE (HEPARIN-FRACTION, SODIUM SALT) [Concomitant]
  4. PLAVIX [Concomitant]
  5. ADALAT [Concomitant]
  6. METOPROLOL TARTRATE [Concomitant]
  7. OXYGEN (OXYGEN) [Concomitant]
  8. ILOPROST (ILOPROST) [Concomitant]

REACTIONS (3)
  - ATROPHY [None]
  - SCOTOMA [None]
  - VISUAL ACUITY REDUCED [None]
